FAERS Safety Report 16890493 (Version 6)
Quarter: 2022Q3

REPORT INFORMATION
  Report Type: Spontaneous
  Country: FR (occurrence: FR)
  Receive Date: 20191007
  Receipt Date: 20220908
  Transmission Date: 20221027
  Serious: Yes (Other)
  Sender: FDA-Public Use
  Company Number: None

PATIENT
  Age: 24 Year
  Sex: Male
  Weight: 48 kg

DRUGS (20)
  1. VALGANCICLOVIR [Suspect]
     Active Substance: VALGANCICLOVIR
     Indication: Prophylaxis
     Dosage: 900 MILLIGRAM, ONCE A DAY
     Route: 048
     Dates: start: 20190719, end: 20190731
  2. VORICONAZOLE [Suspect]
     Active Substance: VORICONAZOLE
     Indication: Prophylaxis
     Dosage: 1 ONCE A DAY, (200 (UNITS NOT REPORTED), ONCE A DAY (QD))
     Route: 048
     Dates: start: 20190718, end: 20190731
  3. VORICONAZOLE [Suspect]
     Active Substance: VORICONAZOLE
     Dosage: ONCE A DAY (200 (UNITS NOT REPORTED), ONCE A DAY (QD))
     Route: 042
     Dates: start: 20190718, end: 20190731
  4. BACTRIM [Suspect]
     Active Substance: SULFAMETHOXAZOLE\TRIMETHOPRIM
     Indication: Prophylaxis
     Dosage: 3 DOSAGE FORM, EVERY WEEK (1 TABLET, THREE TIMES A WEEK (TIW))
     Route: 048
     Dates: start: 20190725, end: 20190731
  5. CEFTOLOZANE SULFATE\TAZOBACTAM SODIUM [Suspect]
     Active Substance: CEFTOLOZANE SULFATE\TAZOBACTAM SODIUM
     Indication: Pneumonia
     Dosage: 6 GRAM, ONCE A DAY (2 GRAM, TID)
     Route: 042
     Dates: start: 20190719, end: 20190729
  6. CEFTOLOZANE SULFATE\TAZOBACTAM SODIUM [Suspect]
     Active Substance: CEFTOLOZANE SULFATE\TAZOBACTAM SODIUM
     Indication: Bacteraemia
     Dosage: 3 DOSAGE FORM, ONCE A DAY
     Route: 042
     Dates: start: 20190729, end: 20190731
  7. TOBRAMYCIN [Suspect]
     Active Substance: TOBRAMYCIN
     Indication: Bacteraemia
     Dosage: 200 MILLIGRAM, ONCE A DAY
     Route: 042
     Dates: start: 20190715, end: 20190722
  8. TOBRAMYCIN [Suspect]
     Active Substance: TOBRAMYCIN
     Indication: Pneumonia
     Dosage: 200 MILLIGRAM, ONCE A DAY
     Route: 065
  9. TOBRAMYCIN [Suspect]
     Active Substance: TOBRAMYCIN
     Dosage: 2 DOSAGE FORM, ONCE A DAY (1 AMPOULE, BID)
     Route: 065
     Dates: start: 20190716
  10. CELLCEPT [Concomitant]
     Active Substance: MYCOPHENOLATE MOFETIL
     Indication: Prophylaxis against transplant rejection
     Dosage: 1400 MILLIGRAM, ONCE A DAY (700 MILLIGRAM, TWO TIMES A DAY (BID))
     Route: 048
  11. PREDNISONE [Concomitant]
     Active Substance: PREDNISONE
     Indication: Antiinflammatory therapy
     Dosage: 20 MILLIGRAM, ONCE A DAY
     Route: 048
  12. COLISTIN [Concomitant]
     Active Substance: COLISTIN
     Indication: Product used for unknown indication
     Dosage: 6 DOSAGE FORM, ONCE A DAY (2 MUI, TID)
     Route: 065
     Dates: start: 20190717
  13. CALCIPARINE [Concomitant]
     Active Substance: HEPARIN CALCIUM
     Indication: Thrombosis prophylaxis
     Dosage: 1 ML, QD (0.5 MILLILITER, TWO TIMES A DAY (BID))
     Route: 065
     Dates: start: 20190718, end: 20190801
  14. FUROSEMIDE [Concomitant]
     Active Substance: FUROSEMIDE
     Indication: Supportive care
     Dosage: 20 MILLIGRAM, ONCE A DAY
     Route: 048
     Dates: start: 20190801
  15. PROGRAF [Concomitant]
     Active Substance: TACROLIMUS
     Indication: Prophylaxis against transplant rejection
     Dosage: 2 MILLIGRAM, ONCE A DAY (1 MILLIGRAM, TWO TIMES A DAY (BID))
     Route: 060
  16. PROGRAF [Concomitant]
     Active Substance: TACROLIMUS
     Dosage: 2 MILLIGRAM, ONCE A DAY (1 MILLIGRAM, TWO TIMES A DAY (BID))
     Route: 065
  17. SKENAN [Concomitant]
     Active Substance: MORPHINE SULFATE
     Indication: Pain prophylaxis
     Dosage: 1 DOSAGE FORM, ONCE A DAY
     Route: 048
  18. TOBRAMYCIN [Concomitant]
     Active Substance: TOBRAMYCIN
     Indication: Product used for unknown indication
     Dosage: 200 MILLIGRAM, ONCE A DAY
     Route: 065
     Dates: start: 20190716, end: 20190722
  19. TOBRAMYCIN [Concomitant]
     Active Substance: TOBRAMYCIN
     Dosage: 2 DOSAGE FORM, ONCE A DAY (1 AMPOULE, BID)
     Route: 065
     Dates: start: 20190716
  20. TOBRAMYCIN [Concomitant]
     Active Substance: TOBRAMYCIN
     Dosage: 200 MILLIGRAM, ONCE A DAY
     Route: 065
     Dates: start: 20190716, end: 20190722

REACTIONS (4)
  - Renal impairment [Recovering/Resolving]
  - Off label use [Unknown]
  - Overdose [Unknown]
  - Intentional product use issue [Unknown]

NARRATIVE: CASE EVENT DATE: 20190719
